FAERS Safety Report 18625251 (Version 1)
Quarter: 2020Q4

REPORT INFORMATION
  Report Type: Other
  Country: US (occurrence: US)
  Receive Date: 20201217
  Receipt Date: 20201217
  Transmission Date: 20210114
  Serious: Yes (Other)
  Sender: FDA-Public Use
  Company Number: US-ROCHE-2731623

PATIENT
  Sex: Female
  Weight: 61.29 kg

DRUGS (1)
  1. EVRYSDI [Suspect]
     Active Substance: RISDIPLAM
     Indication: SPINAL MUSCULAR ATROPHY
     Route: 048
     Dates: start: 20200924

REACTIONS (7)
  - Rosacea [Recovered/Resolved]
  - Stress [Unknown]
  - Systemic candida [Recovered/Resolved]
  - Skin haemorrhage [Unknown]
  - Skin fissures [Unknown]
  - Pain of skin [Unknown]
  - Formication [Unknown]
